FAERS Safety Report 14266028 (Version 1)
Quarter: 2017Q4

REPORT INFORMATION
  Report Type: Spontaneous
  Country: US (occurrence: US)
  Receive Date: 20171209
  Receipt Date: 20171209
  Transmission Date: 20180321
  Serious: No
  Sender: FDA-Public Use
  Company Number: US-GLENMARK PHARMACEUTICALS-2017GMK029239

PATIENT

DRUGS (13)
  1. NOVOLIN [Concomitant]
     Active Substance: INSULIN HUMAN
     Indication: DIABETES MELLITUS
     Dosage: 32 UNITS IN THE MONRING/ 36 UNITS IN THE EVENING) SINCE YEAR
     Route: 058
  2. GABAPENTIN TABLETS [Suspect]
     Active Substance: GABAPENTIN
     Indication: DIABETIC NEUROPATHY
     Dosage: 200 MG, QD
     Route: 065
  3. GABAPENTIN TABLETS [Suspect]
     Active Substance: GABAPENTIN
     Dosage: 200 MG, BID
     Route: 065
  4. GABAPENTIN TABLETS [Suspect]
     Active Substance: GABAPENTIN
     Dosage: 300MG ONCE OR TWICE/DAY
     Route: 065
  5. ASPIRIN                            /00002701/ [Concomitant]
     Active Substance: ASPIRIN
     Indication: BLOOD CHOLESTEROL ABNORMAL
     Dosage: 81 MG, OD SINCE SHE WAS 26 YEARS OLD
     Route: 048
  6. METFORMIN [Concomitant]
     Active Substance: METFORMIN HYDROCHLORIDE
     Indication: DIABETES MELLITUS
     Dosage: 1000 MG, BID, TAKING ABOUT 6 YEARS AGO
     Route: 048
  7. LEVOTHYROXINE. [Concomitant]
     Active Substance: LEVOTHYROXINE
     Indication: THYROID DISORDER
     Dosage: 125 MCG, AM, ONE TABLET ONCE IN THE MORNING SINCE SHE WAS 26 YEARS
     Route: 065
  8. VENLAFAXINE [Concomitant]
     Active Substance: VENLAFAXINE HYDROCHLORIDE
     Indication: ANXIETY
     Dosage: 37.5 MG, BID
     Route: 065
  9. CLARITIN [Concomitant]
     Active Substance: LORATADINE
     Indication: HYPERSENSITIVITY
     Dosage: 10 MG, OD  ABOUT A YEAR AGO
     Route: 065
  10. GABAPENTIN TABLETS [Suspect]
     Active Substance: GABAPENTIN
     Dosage: 1.5 TABLET IN THE MORNING AND 2 TABLETS IN THE EVENING
     Route: 048
  11. LISINOPRIL. [Concomitant]
     Active Substance: LISINOPRIL
     Indication: HYPERTENSION
     Dosage: 40 MG, OD SINCE SHE WAS 26 OR 28 YEARS
     Route: 048
  12. HYDROCHLOROTHIAZIDE. [Concomitant]
     Active Substance: HYDROCHLOROTHIAZIDE
     Indication: HYPERTENSION
     Dosage: 25 MG, OD SINCE SHE WAS 52 YEARS
     Route: 048
  13. LOVASTATIN. [Concomitant]
     Active Substance: LOVASTATIN
     Indication: BLOOD CHOLESTEROL ABNORMAL
     Dosage: 10 MG, OD, ONCE AT NIGHT ABOUT 5 OR 6 YEARS AGO
     Route: 065

REACTIONS (3)
  - Drug dose omission [Unknown]
  - Drug ineffective for unapproved indication [Unknown]
  - Thinking abnormal [Not Recovered/Not Resolved]
